FAERS Safety Report 18527455 (Version 1)
Quarter: 2020Q4

REPORT INFORMATION
  Report Type: Spontaneous
  Country: US (occurrence: US)
  Receive Date: 20201120
  Receipt Date: 20201120
  Transmission Date: 20210114
  Serious: Yes (Other)
  Sender: FDA-Public Use
  Company Number: US-ASTRAZENECA-2020SF51492

PATIENT
  Sex: Female

DRUGS (1)
  1. IMFINZI [Suspect]
     Active Substance: DURVALUMAB
     Dosage: DOSE UNKNOWN; SINCE AUGUST EVERY OTHER WEEK
     Route: 042

REACTIONS (3)
  - Abdominal pain upper [Unknown]
  - Small cell lung cancer [Unknown]
  - Blister [Unknown]
